FAERS Safety Report 7973585-6 (Version None)
Quarter: 2011Q4

REPORT INFORMATION
  Report Type: 
  Country: None (occurrence: None)
  Receive Date: 20111213
  Receipt Date: 20111212
  Transmission Date: 20120403
  Serious: No
  Sender: FDA-Public Use
  Company Number: AR-ROCHE-1021094

PATIENT
  Sex: Female
  Weight: 49.5 kg

DRUGS (2)
  1. ISOTRETINOIN [Suspect]
     Indication: ACNE
     Route: 048
     Dates: start: 20110617, end: 20111111
  2. ETHINYL ESTRADIOL [Concomitant]
     Route: 048
     Dates: start: 20110617

REACTIONS (1)
  - PREGNANCY [None]
